FAERS Safety Report 5715436-6 (Version None)
Quarter: 2008Q2

REPORT INFORMATION
  Report Type: 
  Country: None (occurrence: None)
  Receive Date: 20080423
  Receipt Date: 20080411
  Transmission Date: 20081010
  Serious: Yes (Other)
  Sender: FDA-Public Use
  Company Number: US-PFIZER INC-2008034491

PATIENT
  Sex: Female
  Weight: 57.2 kg

DRUGS (3)
  1. CHANTIX [Suspect]
     Indication: SMOKING CESSATION THERAPY
     Dates: start: 20080301, end: 20080410
  2. DIAZEPAM [Concomitant]
  3. LORCET-HD [Concomitant]
     Indication: ARTHRITIS

REACTIONS (12)
  - AURICULAR SWELLING [None]
  - EAR DISORDER [None]
  - HYPERSENSITIVITY [None]
  - LYMPHADENOPATHY [None]
  - MEMORY IMPAIRMENT [None]
  - MYOCARDIAL INFARCTION [None]
  - NIGHTMARE [None]
  - ORAL DISCOMFORT [None]
  - PAIN [None]
  - PHARYNGEAL OEDEMA [None]
  - SWELLING [None]
  - TINNITUS [None]
